FAERS Safety Report 23936196 (Version 2)
Quarter: 2024Q3

REPORT INFORMATION
  Report Type: Spontaneous
  Country: US (occurrence: None)
  Receive Date: 20240604
  Receipt Date: 20240805
  Transmission Date: 20241016
  Serious: No
  Sender: ASTRAZENECA
  Company Number: 2024A118262

PATIENT
  Sex: Female

DRUGS (1)
  1. SYMBICORT [Suspect]
     Active Substance: BUDESONIDE\FORMOTEROL FUMARATE DIHYDRATE
     Indication: Upper respiratory tract infection
     Dosage: 80 UG, UNKNOWN UNKNOWN
     Route: 055
     Dates: start: 20240517

REACTIONS (4)
  - Burning sensation [Not Recovered/Not Resolved]
  - Device use confusion [Unknown]
  - Product use in unapproved indication [Recovering/Resolving]
  - Wrong technique in product usage process [Recovering/Resolving]
